FAERS Safety Report 8935063 (Version 1)
Quarter: 2012Q4

REPORT INFORMATION
  Report Type: 
  Country: NZ (occurrence: NZ)
  Receive Date: 20121129
  Receipt Date: 20121129
  Transmission Date: 20130627
  Serious: Yes (Other)
  Sender: FDA-Public Use
  Company Number: NZ-BAYER-2012-117163

PATIENT
  Sex: Female

DRUGS (1)
  1. BETAFERON [Suspect]
     Indication: MS
     Dosage: UNK
     Dates: start: 201208

REACTIONS (10)
  - Urinary retention [Not Recovered/Not Resolved]
  - Myoclonus [None]
  - Influenza like illness [Recovered/Resolved]
  - Chills [Recovered/Resolved]
  - Feeling hot [Recovered/Resolved]
  - Injection site pain [None]
  - Multiple sclerosis relapse [None]
  - Burning sensation [None]
  - Pain in extremity [Recovered/Resolved]
  - Initial insomnia [Recovered/Resolved]
